FAERS Safety Report 5228510-8 (Version None)
Quarter: 2007Q1

REPORT INFORMATION
  Report Type: 
  Country: None (occurrence: None)
  Receive Date: 20070205
  Receipt Date: 20070125
  Transmission Date: 20070707
  Serious: Yes (Death, Other)
  Sender: FDA-Public Use
  Company Number: HQWYE650125JAN07

PATIENT
  Age: 53 Year
  Sex: Female

DRUGS (1)
  1. ZOSYN [Suspect]
     Indication: ABDOMINAL INFECTION
     Dosage: UNKNOWN
     Route: 042

REACTIONS (1)
  - DEATH [None]
